FAERS Safety Report 9881449 (Version 2)
Quarter: 2014Q1

REPORT INFORMATION
  Report Type: Spontaneous
  Country: CA (occurrence: CA)
  Receive Date: 20140207
  Receipt Date: 20140207
  Transmission Date: 20141002
  Serious: Yes (Death, Other)
  Sender: FDA-Public Use
  Company Number: CA-BAXTER-2014BAX004600

PATIENT
  Age: 80 Year
  Sex: Male

DRUGS (7)
  1. DIANEAL PD 101 SOLUTION WITH 0.5% DEXTROSE [Suspect]
     Indication: PERITONEAL DIALYSIS
     Dosage: TWIN BAG
     Route: 033
     Dates: start: 20130829, end: 20140127
  2. DIANEAL PD4 SOLUTION WITH 1.5% DEXTROSE AND 2.5 MEQ/L CALCIUM [Suspect]
     Indication: PERITONEAL DIALYSIS
     Dosage: 1 TWIN BAG
     Route: 033
     Dates: start: 20130829, end: 20140127
  3. DIANEAL PD4 SOLUTION WITH 1.5% DEXTROSE AND 2.5 MEQ/L CALCIUM [Suspect]
     Route: 033
     Dates: start: 20131030, end: 20140127
  4. DIANEAL PD4 SOLUTION WITH 1.5% DEXTROSE AND 2.5 MEQ/L CALCIUM [Suspect]
     Route: 033
     Dates: start: 20131030, end: 20140127
  5. DIANEAL PD4 SOLUTION WITH 2.5% DEXTROSE AND 2.5 MEQ/L CALCIUM [Suspect]
     Indication: PERITONEAL DIALYSIS
     Dosage: TWIN BAG
     Route: 033
     Dates: start: 20130829, end: 20140127
  6. DIANEAL PD4 SOLUTION WITH 2.5% DEXTROSE AND 2.5 MEQ/L CALCIUM [Suspect]
     Route: 033
     Dates: start: 20131030, end: 20140127
  7. EXTRANEAL [Suspect]
     Indication: PERITONEAL DIALYSIS
     Route: 033
     Dates: start: 20130829, end: 20140127

REACTIONS (7)
  - Cardiac failure acute [Fatal]
  - Renal failure chronic [Fatal]
  - Myocardial infarction [Unknown]
  - Haematemesis [Unknown]
  - Ulcer haemorrhage [Unknown]
  - Gastric disorder [Unknown]
  - Dehydration [Unknown]
